FAERS Safety Report 13471590 (Version 1)
Quarter: 2017Q2

REPORT INFORMATION
  Report Type: Spontaneous
  Country: US (occurrence: US)
  Receive Date: 20170424
  Receipt Date: 20170424
  Transmission Date: 20170830
  Serious: Yes (Hospitalization)
  Sender: FDA-Public Use
  Company Number: US-UCBSA-2017015629

PATIENT
  Sex: Female
  Weight: 129 kg

DRUGS (2)
  1. NEUPRO [Suspect]
     Active Substance: ROTIGOTINE
     Indication: RESTLESS LEGS SYNDROME
     Dosage: UNK , ONCE DAILY (QD), NDC# 5047480303
     Dates: start: 201509
  2. LYRICA [Suspect]
     Active Substance: PREGABALIN
     Indication: RESTLESS LEGS SYNDROME
     Dosage: 75 MG, ONCE DAILY (QD) AS NEEDED, NDC# 3802617101
     Route: 048
     Dates: start: 2016

REACTIONS (2)
  - Osteoarthritis [Unknown]
  - Drug ineffective [Unknown]
